FAERS Safety Report 11399904 (Version 1)
Quarter: 2015Q3

REPORT INFORMATION
  Report Type: Spontaneous
  Country: US (occurrence: None)
  Receive Date: 20150805
  Receipt Date: 20150805
  Transmission Date: 20151125
  Serious: Yes (Other)
  Sender: FDA-Public Use
  Company Number: GTI002467

PATIENT
  Age: 74 Year
  Sex: Female
  Weight: 91.4 kg

DRUGS (6)
  1. ALBUTEROL. [Concomitant]
     Active Substance: ALBUTEROL
  2. CLONIDINE. [Concomitant]
     Active Substance: CLONIDINE
  3. LEXAPRO [Concomitant]
     Active Substance: ESCITALOPRAM OXALATE
  4. GAMUNEX-C [Suspect]
     Active Substance: HUMAN IMMUNOGLOBULIN G
     Route: 042
     Dates: start: 20140310, end: 20140723
  5. REQUIP [Concomitant]
     Active Substance: ROPINIROLE HYDROCHLORIDE
  6. COREG [Concomitant]
     Active Substance: CARVEDILOL

REACTIONS (2)
  - Peripheral coldness [None]
  - Anaphylactic reaction [None]

NARRATIVE: CASE EVENT DATE: 20140723
